FAERS Safety Report 15845071 (Version 1)
Quarter: 2019Q1

REPORT INFORMATION
  Report Type: Spontaneous
  Country: US (occurrence: US)
  Receive Date: 20190119
  Receipt Date: 20190119
  Transmission Date: 20190417
  Serious: No
  Sender: FDA-Public Use
  Company Number: US-TEVA-2018-US-993323

PATIENT
  Sex: Female

DRUGS (1)
  1. PANTOPRAZOLE SODIUM. [Suspect]
     Active Substance: PANTOPRAZOLE SODIUM
     Dosage: DELAYED-RELEASE TABLETS
     Route: 065

REACTIONS (1)
  - Gluten sensitivity [Unknown]
